FAERS Safety Report 6515804-9 (Version None)
Quarter: 2009Q4

REPORT INFORMATION
  Report Type: 
  Country: None (occurrence: None)
  Receive Date: 20091223
  Receipt Date: 20091216
  Transmission Date: 20100525
  Serious: Yes (Hospitalization)
  Sender: FDA-Public Use
  Company Number: PHHO2009AU15699

PATIENT
  Sex: Male

DRUGS (1)
  1. CERTICAN [Suspect]
     Indication: LIVER TRANSPLANT
     Dosage: 6.5MG DAILY
     Route: 048
     Dates: start: 20090702

REACTIONS (3)
  - BLOOD GLUCOSE INCREASED [None]
  - LIVER TRANSPLANT REJECTION [None]
  - RENAL IMPAIRMENT [None]
